FAERS Safety Report 9675803 (Version 1)
Quarter: 2013Q4

REPORT INFORMATION
  Report Type: Spontaneous
  Country: FR (occurrence: FR)
  Receive Date: 20131107
  Receipt Date: 20131107
  Transmission Date: 20140711
  Serious: Yes (Hospitalization)
  Sender: FDA-Public Use
  Company Number: FR-BRISTOL-MYERS SQUIBB COMPANY-19720606

PATIENT
  Age: 87 Year
  Sex: Female

DRUGS (4)
  1. ONGLYZA TABS 2.5 MG [Suspect]
     Route: 048
     Dates: start: 20121126, end: 20130829
  2. OROCAL D3 [Concomitant]
     Dosage: 1DF=500 MG/200 IU
  3. FLIXOTIDE [Concomitant]
     Route: 055
  4. NOROXINE [Concomitant]
     Indication: URINARY TRACT INFECTION
     Route: 048
     Dates: start: 20090629, end: 20130706

REACTIONS (3)
  - Weight decreased [Recovered/Resolved]
  - Vomiting [Recovered/Resolved]
  - Decreased appetite [Recovered/Resolved]
